FAERS Safety Report 11283389 (Version 1)
Quarter: 2015Q3

REPORT INFORMATION
  Report Type: Spontaneous
  Country: US (occurrence: None)
  Receive Date: 20150717
  Receipt Date: 20150717
  Transmission Date: 20151125
  Serious: Yes (Hospitalization)
  Sender: FDA-Public Use
  Company Number: None

PATIENT
  Age: 90 Year
  Sex: Male
  Weight: 85 kg

DRUGS (3)
  1. SULFAMETHOXAZOLE/TRIMETHOPRIM [Suspect]
     Active Substance: SULFAMETHOXAZOLE\TRIMETHOPRIM
     Indication: INFECTION
     Route: 048
     Dates: start: 20150402, end: 20150417
  2. SULFAMETHOXAZOLE/TRIMETHOPRIM [Suspect]
     Active Substance: SULFAMETHOXAZOLE\TRIMETHOPRIM
     Indication: ULCER
     Route: 048
     Dates: start: 20150402, end: 20150417
  3. SULFAMETHOXAZOLE/TRIMETHOPRIM [Suspect]
     Active Substance: SULFAMETHOXAZOLE\TRIMETHOPRIM
     Indication: DIABETES MELLITUS
     Route: 048
     Dates: start: 20150402, end: 20150417

REACTIONS (8)
  - Diarrhoea [None]
  - Atrioventricular block first degree [None]
  - Acute kidney injury [None]
  - Hyperkalaemia [None]
  - Hypotension [None]
  - Atrioventricular block second degree [None]
  - Palpitations [None]
  - Malaise [None]

NARRATIVE: CASE EVENT DATE: 20150418
